FAERS Safety Report 9469692 (Version 2)
Quarter: 2013Q3

REPORT INFORMATION
  Report Type: Spontaneous
  Country: US (occurrence: US)
  Receive Date: 20130822
  Receipt Date: 20130822
  Transmission Date: 20140515
  Serious: Yes (Hospitalization, Other)
  Sender: FDA-Public Use
  Company Number: US-ACCORD-019013

PATIENT
  Age: 56 Year
  Sex: Male

DRUGS (7)
  1. TACROLIMUS [Suspect]
     Indication: IMMUNOSUPPRESSION
  2. MYCOPHENOLATE [Concomitant]
     Indication: RENAL TRANSPLANT
  3. VALGANCICLOVIR [Concomitant]
     Indication: PROPHYLAXIS
  4. FLUCONAZOLE [Concomitant]
     Indication: PROPHYLAXIS
  5. THYMOGLOBULIN [Concomitant]
     Indication: RENAL TRANSPLANT
     Dosage: 125 MG INTRA-OP,DOSES HELD TO 75 MG DAILYX2 DUE TO THROMBOCYTOPENIA
     Route: 042
  6. METHYLPREDNISOLONE [Concomitant]
     Indication: RENAL TRANSPLANT
     Dosage: TAPER TO 5 MG DAILY
  7. TRIMETHOPRIM SULFAMETHOXAZOLE [Concomitant]
     Indication: PROPHYLAXIS

REACTIONS (1)
  - Thrombotic microangiopathy [Recovered/Resolved]
